FAERS Safety Report 10046082 (Version 2)
Quarter: 2014Q2

REPORT INFORMATION
  Report Type: Spontaneous
  Country: US (occurrence: US)
  Receive Date: 20140331
  Receipt Date: 20140416
  Transmission Date: 20141212
  Serious: Yes (Death, Other)
  Sender: FDA-Public Use
  Company Number: US-AMGEN-USASP2014021324

PATIENT
  Age: 76 Year
  Sex: Female

DRUGS (1)
  1. PROLIA [Suspect]
     Indication: OSTEOPOROSIS POSTMENOPAUSAL
     Dosage: 60 MG/ML, Q6MO
     Route: 065

REACTIONS (3)
  - Pneumonia [Fatal]
  - Hip fracture [Unknown]
  - Fall [Unknown]
